FAERS Safety Report 5565703-4 (Version None)
Quarter: 2007Q4

REPORT INFORMATION
  Report Type: 
  Country: None (occurrence: None)
  Receive Date: 20071130
  Receipt Date: 20070829
  Transmission Date: 20080405
  Serious: No
  Sender: FDA-Public Use
  Company Number: US200708006801

PATIENT
  Age: 68 Year
  Sex: Female

DRUGS (4)
  1. BYETTA [Suspect]
     Indication: TYPE 2 DIABETES MELLITUS
     Dosage: 5 UG, 2/D, SUBCUTANEOUS
     Route: 058
     Dates: start: 20070801
  2. EXENATIDE 5 MCG PEN, DISPOSABLE DEVICE (EXENATIDE PEN) (5MCG)) PEN,DIS [Concomitant]
  3. METFORMIN HCL [Concomitant]
  4. ALL OTHER THERAPEUTIC PRODUCTS [Concomitant]

REACTIONS (2)
  - OEDEMA PERIPHERAL [None]
  - PAIN IN EXTREMITY [None]
